FAERS Safety Report 11855459 (Version 1)
Quarter: 2015Q4

REPORT INFORMATION
  Report Type: Report from Study
  Country: CA (occurrence: CA)
  Receive Date: 20151221
  Receipt Date: 20151221
  Transmission Date: 20160305
  Serious: Yes (Other)
  Sender: FDA-Public Use
  Company Number: CA-BIOGEN-2015BI144945

PATIENT
  Age: 61 Year
  Sex: Female

DRUGS (1)
  1. TYSABRI [Suspect]
     Active Substance: NATALIZUMAB
     Indication: MULTIPLE SCLEROSIS
     Route: 042
     Dates: start: 20130228, end: 201511

REACTIONS (11)
  - Pelvic pain [Not Recovered/Not Resolved]
  - Pallor [Unknown]
  - Escherichia test positive [Not Recovered/Not Resolved]
  - Blast cells present [Unknown]
  - Leukaemia [Unknown]
  - White blood cell count increased [Not Recovered/Not Resolved]
  - Tremor [Unknown]
  - Pain in extremity [Unknown]
  - Abdominal pain [Not Recovered/Not Resolved]
  - Fatigue [Not Recovered/Not Resolved]
  - Dyspnoea [Not Recovered/Not Resolved]

NARRATIVE: CASE EVENT DATE: 20151022
